FAERS Safety Report 6371631-7 (Version None)
Quarter: 2009Q3

REPORT INFORMATION
  Report Type: 
  Country: None (occurrence: None)
  Receive Date: 20090923
  Receipt Date: 20080313
  Transmission Date: 20100115
  Serious: Yes (Hospitalization)
  Sender: FDA-Public Use
  Company Number: US-ASTRAZENECA-2008UW01160

PATIENT
  Age: 17342 Day
  Sex: Male
  Weight: 74.8 kg

DRUGS (15)
  1. SEROQUEL [Suspect]
     Indication: ANXIETY
     Dosage: 150 MG - 300 MG
     Route: 048
     Dates: start: 19970601, end: 20051101
  2. SEROQUEL [Suspect]
     Indication: DEPRESSION
     Dosage: 150 MG - 300 MG
     Route: 048
     Dates: start: 19970601, end: 20051101
  3. SEROQUEL [Suspect]
     Indication: SCHIZOPHRENIA
     Dosage: 150 MG - 300 MG
     Route: 048
     Dates: start: 19970601, end: 20051101
  4. NOVOLIN 70/30 [Concomitant]
  5. AMITRIPTYLINE [Concomitant]
  6. NORVASC [Concomitant]
  7. RESTORIL [Concomitant]
  8. RISPERIDONE [Concomitant]
  9. CITALOPRAM [Concomitant]
  10. LISINOPRIL [Concomitant]
  11. HYDROCHLOROTHIAZIDE [Concomitant]
  12. METOPROLOL TARTRATE [Concomitant]
  13. TRAZODONE [Concomitant]
  14. THIORIDAZINE HCL [Concomitant]
  15. ASPIRIN [Concomitant]

REACTIONS (1)
  - DIABETES MELLITUS INADEQUATE CONTROL [None]
